FAERS Safety Report 6564831-4 (Version None)
Quarter: 2010Q1

REPORT INFORMATION
  Report Type: 
  Country: None (occurrence: None)
  Receive Date: 20100201
  Receipt Date: 20100121
  Transmission Date: 20100710
  Serious: Yes (Hospitalization)
  Sender: FDA-Public Use
  Company Number: US-PFIZER INC-2010009844

PATIENT
  Sex: Female

DRUGS (2)
  1. CHANTIX [Suspect]
     Indication: SMOKING CESSATION THERAPY
     Dosage: 1 MG, 2X/DAY
     Route: 048
     Dates: start: 20100101, end: 20100119
  2. CHANTIX [Suspect]
     Dosage: .5 MG, 1X/DAY
     Route: 048
     Dates: start: 20100101, end: 20100101

REACTIONS (4)
  - BONE SWELLING [None]
  - GINGIVAL SWELLING [None]
  - HYPERSENSITIVITY [None]
  - SWELLING FACE [None]
